FAERS Safety Report 18527851 (Version 1)
Quarter: 2020Q4

REPORT INFORMATION
  Report Type: Spontaneous
  Country: JP (occurrence: JP)
  Receive Date: 20201120
  Receipt Date: 20201120
  Transmission Date: 20210114
  Serious: Yes (Other)
  Sender: FDA-Public Use
  Company Number: JP-ELI_LILLY_AND_COMPANY-JP202011006594

PATIENT
  Age: 41 Year
  Sex: Male
  Weight: 58 kg

DRUGS (14)
  1. PEMAFIBRATE [Concomitant]
     Active Substance: PEMAFIBRATE
     Dosage: 0.1 MG, BID
     Route: 048
     Dates: start: 20200914
  2. CAMOSTAT MESILATE [Concomitant]
     Active Substance: CAMOSTAT MESYLATE
     Dosage: 200 MG, TID
     Route: 048
  3. LOXOPROFEN SODIUM HYDRATE [Concomitant]
     Active Substance: LOXOPROFEN SODIUM DIHYDRATE
     Dosage: 60 MG, PRN
     Route: 048
  4. ROSUVASTATIN CALCIUM. [Concomitant]
     Active Substance: ROSUVASTATIN CALCIUM
     Dosage: 5 MG, EACH EVENING
     Dates: start: 20200818, end: 20200910
  5. DOMPERIDONE [Concomitant]
     Active Substance: DOMPERIDONE
     Dosage: 10 MG, PRN
     Route: 048
  6. METOCLOPRAMIDE. [Concomitant]
     Active Substance: METOCLOPRAMIDE
     Dosage: 5 MG, PRN
     Route: 048
  7. PEMAFIBRATE [Concomitant]
     Active Substance: PEMAFIBRATE
     Dosage: 0.1 MG, BID
     Route: 048
     Dates: start: 20200818, end: 20200908
  8. NATEGLINIDE. [Concomitant]
     Active Substance: NATEGLINIDE
     Dosage: 90 MG, DAILY
     Route: 048
     Dates: start: 20200715, end: 20200909
  9. SODIUM RABEPRAZOLE [Concomitant]
     Active Substance: RABEPRAZOLE SODIUM
     Dosage: 10 MG, DAILY
     Route: 048
  10. HUMALOG [Suspect]
     Active Substance: INSULIN LISPRO
     Indication: PANCREATOGENOUS DIABETES
     Dosage: UNK
     Route: 058
     Dates: start: 20200904, end: 20200907
  11. PANCRELIPASE. [Concomitant]
     Active Substance: PANCRELIPASE
     Dosage: 600 MG, TID
     Route: 048
  12. INSULIN DEGLUDEC [Concomitant]
     Active Substance: INSULIN DEGLUDEC
     Dosage: 4 DOSAGE FORM, DAILY
     Route: 065
     Dates: start: 20200715
  13. INSULIN LISPRO SANOFI [Suspect]
     Active Substance: INSULIN LISPRO
     Indication: PANCREATOGENOUS DIABETES
     Dosage: UNK
     Route: 058
     Dates: start: 20200818, end: 20200903
  14. BERIZYM [ENZYMES NOS] [Concomitant]
     Dosage: 1 G, TID
     Route: 048

REACTIONS (5)
  - Injection site erythema [Unknown]
  - Injection site pruritus [Unknown]
  - Nausea [Recovering/Resolving]
  - Malaise [Unknown]
  - Vomiting [Recovering/Resolving]

NARRATIVE: CASE EVENT DATE: 20200903
